FAERS Safety Report 8218057-9 (Version None)
Quarter: 2012Q1

REPORT INFORMATION
  Report Type: 
  Country: None (occurrence: None)
  Receive Date: 20120319
  Receipt Date: 20120313
  Transmission Date: 20120608
  Serious: Yes (Other)
  Sender: FDA-Public Use
  Company Number: US-PFIZER INC-2012067050

PATIENT
  Sex: Male
  Weight: 92 kg

DRUGS (5)
  1. TOVIAZ [Suspect]
     Indication: PROSTATOMEGALY
     Dosage: 4 MG, DAILY
     Dates: start: 20120126, end: 20120227
  2. SILODOSIN [Suspect]
     Indication: NOCTURIA
  3. DIOVAN [Concomitant]
     Indication: HYPERTENSION
     Dosage: 80 MG, DAILY
  4. TOVIAZ [Suspect]
     Indication: NOCTURIA
  5. SILODOSIN [Suspect]
     Indication: PROSTATOMEGALY
     Dosage: 8 MG, DAILY
     Dates: start: 20120101

REACTIONS (5)
  - URINARY RETENTION [None]
  - ANORECTAL DISORDER [None]
  - EJACULATION FAILURE [None]
  - BLADDER SPHINCTER ATONY [None]
  - URINARY INCONTINENCE [None]
